FAERS Safety Report 6654637-X (Version None)
Quarter: 2010Q1

REPORT INFORMATION
  Report Type: 
  Country: None (occurrence: None)
  Receive Date: 20100326
  Receipt Date: 20100315
  Transmission Date: 20100710
  Serious: Yes (Hospitalization)
  Sender: FDA-Public Use
  Company Number: PHHY2009PL56226

PATIENT
  Sex: Female
  Weight: 88 kg

DRUGS (6)
  1. CERTICAN [Suspect]
     Indication: TRANSPLANT FAILURE
     Dosage: 1.5 MG, BID
     Route: 048
     Dates: start: 20090923, end: 20100121
  2. CERTICAN [Suspect]
     Indication: RENAL TRANSPLANT
  3. NEORAL [Concomitant]
     Dosage: UNK
  4. MYFORTIC [Concomitant]
     Indication: IMMUNOSUPPRESSION
     Dosage: 2X360 MG
  5. ENARENAL [Concomitant]
     Dosage: 5MG
     Dates: start: 20030102
  6. ENCORTON [Concomitant]
     Indication: IMMUNOSUPPRESSION
     Dosage: 5 MG, UNK

REACTIONS (5)
  - ANAEMIA [None]
  - CHRONIC ALLOGRAFT NEPHROPATHY [None]
  - GRAFT COMPLICATION [None]
  - METABOLIC ACIDOSIS [None]
  - RENAL DISORDER [None]
